FAERS Safety Report 26073306 (Version 1)
Quarter: 2025Q4

REPORT INFORMATION
  Report Type: Spontaneous
  Country: US (occurrence: US)
  Receive Date: 20251121
  Receipt Date: 20251121
  Transmission Date: 20260117
  Serious: No
  Sender: OTSUKA
  Company Number: US-MMM-Otsuka-G7YE9QWS

PATIENT
  Sex: Female
  Weight: 68.04 kg

DRUGS (2)
  1. NUEDEXTA [Suspect]
     Active Substance: DEXTROMETHORPHAN HYDROBROMIDE\QUINIDINE SULFATE
     Indication: Product used for unknown indication
     Dosage: (20-10 MG)
     Route: 065
  2. ARIPIPRAZOLE [Concomitant]
     Active Substance: ARIPIPRAZOLE
     Indication: Product used for unknown indication
     Dosage: HALF PILL
     Route: 065

REACTIONS (4)
  - Crying [Unknown]
  - Defiant behaviour [Unknown]
  - Therapy interrupted [Unknown]
  - Product dose omission issue [Unknown]
